FAERS Safety Report 7583159-7 (Version None)
Quarter: 2011Q2

REPORT INFORMATION
  Report Type: 
  Country: None (occurrence: None)
  Receive Date: 20110630
  Receipt Date: 20110623
  Transmission Date: 20111010
  Serious: Yes (Hospitalization, Other)
  Sender: FDA-Public Use
  Company Number: US-SANOFI-AVENTIS-2011SA034858

PATIENT
  Age: 69 Year
  Sex: Male
  Weight: 91 kg

DRUGS (13)
  1. ZOCOR [Concomitant]
     Route: 065
  2. CITALOPRAM HYDROBROMIDE [Concomitant]
     Route: 065
  3. OMEPRAZOLE [Concomitant]
     Route: 065
  4. PLAVIX [Concomitant]
     Route: 048
  5. NOVOLOG [Suspect]
     Dosage: 8-12 UNITS SC THREE TIMES A DAY BEFORE EACH MEAL
     Route: 058
  6. CLONIDINE [Concomitant]
     Route: 065
  7. LANTUS [Suspect]
     Indication: TYPE 2 DIABETES MELLITUS
     Dosage: DOSE:30 UNIT(S)
     Route: 058
  8. TAMSULOSIN HYDROCHLORIDE [Concomitant]
     Route: 065
  9. HYDRALAZINE HCL [Concomitant]
     Route: 065
  10. COLACE [Concomitant]
  11. SOLOSTAR [Suspect]
     Indication: TYPE 2 DIABETES MELLITUS
  12. ENALAPRIL MALEATE [Concomitant]
     Route: 065
  13. ATENOLOL AND CHLORTHALIDONE [Concomitant]
     Dosage: 50/25 MG DAILY

REACTIONS (4)
  - DEVICE MALFUNCTION [None]
  - CEREBROVASCULAR ACCIDENT [None]
  - HOSPITALISATION [None]
  - PRODUCT QUALITY ISSUE [None]
